FAERS Safety Report 21816828 (Version 1)
Quarter: 2023Q1

REPORT INFORMATION
  Report Type: Spontaneous
  Country: US (occurrence: None)
  Receive Date: 20230103
  Receipt Date: 20230103
  Transmission Date: 20230418
  Serious: No
  Sender: FDA-Public Use
  Company Number: None

PATIENT
  Age: 64 Year
  Sex: Male
  Weight: 139.95 kg

DRUGS (10)
  1. TACROLIMUS [Suspect]
     Active Substance: TACROLIMUS
     Indication: Product used for unknown indication
     Dosage: OTHER QUANTITY : 1 DROP(S);?FREQUENCY : EVERY 12 HOURS;?
     Route: 061
     Dates: start: 20230103, end: 20230103
  2. Carvidilol [Concomitant]
  3. EVOXAC [Concomitant]
     Active Substance: CEVIMELINE HYDROCHLORIDE
  4. ARMOUR THYROID [Concomitant]
     Active Substance: THYROID, PORCINE
  5. blood pressures [Concomitant]
  6. NIACIN [Concomitant]
     Active Substance: NIACIN
  7. ZINC [Concomitant]
     Active Substance: ZINC
  8. VITAMIN D NOS [Concomitant]
     Active Substance: VITAMIN D NOS
  9. MAGNESIUM [Concomitant]
     Active Substance: MAGNESIUM
  10. PRASTERONE [Concomitant]
     Active Substance: PRASTERONE

REACTIONS (2)
  - Pruritus [None]
  - Application site pruritus [None]

NARRATIVE: CASE EVENT DATE: 20230103
